FAERS Safety Report 9708393 (Version 1)
Quarter: 2013Q4

REPORT INFORMATION
  Report Type: Spontaneous
  Country: US (occurrence: US)
  Receive Date: 20131125
  Receipt Date: 20131125
  Transmission Date: 20140711
  Serious: Yes (Other)
  Sender: FDA-Public Use
  Company Number: US-TEVA-445753USA

PATIENT
  Age: 53 Year
  Sex: Male

DRUGS (1)
  1. TEMOZOLOMIDE [Suspect]
     Indication: OLIGOASTROCYTOMA
     Dosage: 150 MILLIGRAM DAILY;
     Route: 065

REACTIONS (1)
  - Diabetes insipidus [Recovered/Resolved]
